FAERS Safety Report 8361165-2 (Version None)
Quarter: 2012Q2

REPORT INFORMATION
  Report Type: 
  Country: None (occurrence: None)
  Receive Date: 20120515
  Receipt Date: 20110706
  Transmission Date: 20120825
  Serious: No
  Sender: FDA-Public Use
  Company Number: US-ALEXION-A201101025

PATIENT
  Sex: Male

DRUGS (3)
  1. ALLEGRA [Concomitant]
     Dosage: UNK
  2. FOLIC ACID [Concomitant]
     Dosage: UNK
  3. SOLIRIS [Suspect]
     Indication: PAROXYSMAL NOCTURNAL HAEMOGLOBINURIA
     Dosage: 900 MG, UNK
     Route: 042

REACTIONS (11)
  - CHROMATURIA [None]
  - DYSPHAGIA [None]
  - FATIGUE [None]
  - OCULAR HYPERAEMIA [None]
  - ABDOMINAL PAIN UPPER [None]
  - JAUNDICE [None]
  - BLOOD LACTATE DEHYDROGENASE INCREASED [None]
  - HEADACHE [None]
  - NAUSEA [None]
  - BLOOD BILIRUBIN INCREASED [None]
  - OCULAR ICTERUS [None]
